FAERS Safety Report 9357393 (Version 1)
Quarter: 2013Q2

REPORT INFORMATION
  Report Type: Report from Study
  Country: CN (occurrence: CN)
  Receive Date: 20130620
  Receipt Date: 20130620
  Transmission Date: 20140414
  Serious: Yes (Other)
  Sender: FDA-Public Use
  Company Number: CN-JNJFOC-20130610110

PATIENT
  Sex: 0

DRUGS (3)
  1. REMICADE [Suspect]
     Indication: RHEUMATOID ARTHRITIS
     Dosage: WEEK 0, 2, 6, 14, 22
     Route: 042
  2. METHOTREXATE [Suspect]
     Indication: RHEUMATOID ARTHRITIS
     Dosage: HAD A STABLE DOSE OF 7.5-20 MG/WEEK FOR AT LEAST 4 WEEKS
     Route: 065
  3. CORTICOSTEROIDS [Concomitant]
     Dosage: HAD A STABLE DOSE OF LESS THAN EQUAL TO 10 MG/DAY (EQUIVALENT TO THE DOSE OF PREDNISONE)
     Route: 065

REACTIONS (1)
  - Transfusion reaction [Unknown]
